FAERS Safety Report 23136386 (Version 3)
Quarter: 2023Q4

REPORT INFORMATION
  Report Type: Spontaneous
  Country: US (occurrence: None)
  Receive Date: 20231102
  Receipt Date: 20231231
  Transmission Date: 20240110
  Serious: No
  Sender: FDA-Public Use
  Company Number: 2023A246815

PATIENT
  Age: 69 Year
  Sex: Male

DRUGS (1)
  1. BYDUREON BCISE [Suspect]
     Active Substance: EXENATIDE

REACTIONS (6)
  - Injection site haemorrhage [Unknown]
  - Wrong technique in device usage process [Unknown]
  - Device use issue [Unknown]
  - Device leakage [Unknown]
  - Device delivery system issue [Unknown]
  - Needle issue [Unknown]

NARRATIVE: CASE EVENT DATE: 20230101
